FAERS Safety Report 19871605 (Version 1)
Quarter: 2021Q3

REPORT INFORMATION
  Report Type: Report from Study
  Country: CA (occurrence: CA)
  Receive Date: 20210923
  Receipt Date: 20210923
  Transmission Date: 20211014
  Serious: Yes (Other)
  Sender: FDA-Public Use
  Company Number: CA-SA-2020SA131508

PATIENT
  Age: 48 Year
  Sex: Female

DRUGS (18)
  1. VITAMIN B12 [VITAMIN B12 NOS] [Concomitant]
     Active Substance: CYANOCOBALAMIN
     Dosage: UNK
  2. TERIFLUNOMIDE. [Suspect]
     Active Substance: TERIFLUNOMIDE
     Indication: RELAPSING-REMITTING MULTIPLE SCLEROSIS
     Dosage: 14 MG, QD
     Route: 048
     Dates: start: 20150511
  3. AVAPRO [Concomitant]
     Active Substance: IRBESARTAN
     Indication: DEPRESSION
  4. AVAPRO [Concomitant]
     Active Substance: IRBESARTAN
     Indication: BLOOD PRESSURE MEASUREMENT
  5. AVAPRO [Concomitant]
     Active Substance: IRBESARTAN
     Indication: MIGRAINE
     Dosage: 300 MG, QD
  6. MULTIVITAMINS [VITAMINS NOS] [Concomitant]
     Active Substance: VITAMINS
     Indication: SUPPLEMENTATION THERAPY
     Dosage: UNK
     Route: 048
  7. BACLOFEN. [Concomitant]
     Active Substance: BACLOFEN
     Indication: MUSCLE SPASMS
     Dosage: UNK UNK, BID
     Route: 048
  8. ZOLOFT [Concomitant]
     Active Substance: SERTRALINE HYDROCHLORIDE
     Indication: DEPRESSION
     Dosage: 100 MG, QD
     Route: 048
  9. MARIJUANA [Concomitant]
     Active Substance: CANNABIS SATIVA SUBSP. INDICA TOP
     Indication: TREMOR
  10. VITAMIN D NOS [Concomitant]
     Active Substance: VITAMIN D NOS
     Indication: SUPPLEMENTATION THERAPY
     Dosage: 3000 IU
     Route: 048
  11. AVAPRO [Concomitant]
     Active Substance: IRBESARTAN
     Indication: TREMOR
  12. DIAZEPAM. [Suspect]
     Active Substance: DIAZEPAM
  13. VITAMIN B1 [Concomitant]
     Active Substance: THIAMINE HYDROCHLORIDE
     Dosage: UNK
  14. AVAPRO [Concomitant]
     Active Substance: IRBESARTAN
     Indication: PAIN IN EXTREMITY
  15. AVAPRO [Concomitant]
     Active Substance: IRBESARTAN
     Indication: ANXIETY
  16. CLONAZEPAM. [Suspect]
     Active Substance: CLONAZEPAM
     Indication: ANXIETY
     Dosage: UNK
  17. MARIJUANA [Concomitant]
     Active Substance: CANNABIS SATIVA SUBSP. INDICA TOP
     Indication: PAIN IN EXTREMITY
     Dosage: UNK, PRN (AS NEEDED
     Route: 048
  18. CANNABIDIOL [Concomitant]
     Active Substance: CANNABIDIOL
     Indication: ANXIETY
     Dosage: UNK, PRN

REACTIONS (18)
  - Respiratory disorder [Recovered/Resolved]
  - Anxiety [Recovered/Resolved]
  - Feeling abnormal [Unknown]
  - Tremor [Not Recovered/Not Resolved]
  - Pain in extremity [Not Recovered/Not Resolved]
  - Dry mouth [Recovering/Resolving]
  - Drug interaction [Recovered/Resolved]
  - Pyrexia [Recovered/Resolved]
  - Rhinorrhoea [Recovered/Resolved]
  - Hypertension [Unknown]
  - Headache [Recovered/Resolved]
  - Feeling hot [Recovered/Resolved]
  - Hysterectomy [Recovered/Resolved]
  - Myocardial infarction [Recovered/Resolved]
  - Eye pain [Unknown]
  - Thirst [Recovering/Resolving]
  - Cough [Recovered/Resolved]
  - COVID-19 [Recovered/Resolved]

NARRATIVE: CASE EVENT DATE: 20180523
